FAERS Safety Report 8413529-6 (Version None)
Quarter: 2012Q2

REPORT INFORMATION
  Report Type: 
  Country: None (occurrence: None)
  Receive Date: 20120605
  Receipt Date: 20120530
  Transmission Date: 20120825
  Serious: Yes (Hospitalization, Congenital Anomaly)
  Sender: FDA-Public Use
  Company Number: US-GLAXOSMITHKLINE-A0979888A

PATIENT
  Sex: Male
  Weight: 2.3 kg

DRUGS (2)
  1. PAXIL [Suspect]
     Indication: PRODUCT USED FOR UNKNOWN INDICATION
     Route: 064
  2. MULTI-VITAMINS [Concomitant]

REACTIONS (6)
  - VENTRICULAR SEPTAL DEFECT [None]
  - CONGENITAL AORTIC ANOMALY [None]
  - ATRIAL SEPTAL DEFECT [None]
  - RIGHT VENTRICLE OUTFLOW TRACT OBSTRUCTION [None]
  - CARDIAC FAILURE CONGESTIVE [None]
  - FOETAL EXPOSURE DURING PREGNANCY [None]
